FAERS Safety Report 12910084 (Version 2)
Quarter: 2016Q4

REPORT INFORMATION
  Report Type: Spontaneous
  Country: US (occurrence: US)
  Receive Date: 20161104
  Receipt Date: 20161212
  Transmission Date: 20170207
  Serious: Yes (Other)
  Sender: FDA-Public Use
  Company Number: US-JNJFOC-20161014590

PATIENT
  Age: 81 Year
  Sex: Female
  Weight: 74.84 kg

DRUGS (6)
  1. PYRIDOSTIGMINE [Concomitant]
     Active Substance: PYRIDOSTIGMINE
     Indication: MYASTHENIA GRAVIS
     Dosage: DOSE: PRESCRIBED 60 MG 4 TIMES DAILY BUT PATIENT ONLY TAKES 30 MG
     Route: 065
     Dates: start: 201208
  2. CALCIUM PLUS D3 [Concomitant]
     Indication: MYASTHENIA GRAVIS
     Route: 065
     Dates: start: 201208
  3. VITAMINA B12 [Concomitant]
     Indication: MYASTHENIA GRAVIS
     Route: 065
     Dates: start: 201208
  4. COQ10 [Concomitant]
     Active Substance: UBIDECARENONE
     Indication: CARDIAC DISORDER
     Route: 065
     Dates: start: 201208
  5. PREDNISONE. [Concomitant]
     Active Substance: PREDNISONE
     Indication: MYASTHENIA GRAVIS
     Dosage: DOSE: 5-60 MG
     Route: 065
     Dates: start: 201208
  6. XARELTO [Suspect]
     Active Substance: RIVAROXABAN
     Indication: THROMBOSIS
     Dosage: DOSE: TAKEN 15 MG AT NIGHT ON 13-OCT-2016 FOLLOWED BY TWICE DAILY ON 14-OCT-2016
     Route: 048
     Dates: start: 20161013

REACTIONS (2)
  - Haematochezia [Not Recovered/Not Resolved]
  - Thinking abnormal [Unknown]

NARRATIVE: CASE EVENT DATE: 20161015
